FAERS Safety Report 7776622-7 (Version None)
Quarter: 2011Q3

REPORT INFORMATION
  Report Type: 
  Country: None (occurrence: None)
  Receive Date: 20110926
  Receipt Date: 20110916
  Transmission Date: 20111222
  Serious: Yes (Other)
  Sender: FDA-Public Use
  Company Number: US-JNJFOC-20110707381

PATIENT

DRUGS (5)
  1. HALDOL [Suspect]
     Indication: MENTAL DISORDER
     Route: 065
  2. BENADRYL [Suspect]
     Indication: MENTAL DISORDER
     Route: 065
  3. COGENTIN [Suspect]
     Indication: MENTAL DISORDER
     Route: 065
  4. ZOLOFT [Suspect]
     Indication: PRODUCT USED FOR UNKNOWN INDICATION
     Route: 065
  5. TRAZODONE HYDROCHLORIDE [Suspect]
     Indication: PRODUCT USED FOR UNKNOWN INDICATION
     Route: 065

REACTIONS (8)
  - SOMNOLENCE [None]
  - SLOW RESPONSE TO STIMULI [None]
  - DISORIENTATION [None]
  - FEELING ABNORMAL [None]
  - NAUSEA [None]
  - TREMOR [None]
  - JUDGEMENT IMPAIRED [None]
  - CONFUSIONAL STATE [None]
